FAERS Safety Report 15993278 (Version 2)
Quarter: 2019Q1

REPORT INFORMATION
  Report Type: Spontaneous
  Country: US (occurrence: US)
  Receive Date: 20190222
  Receipt Date: 20190222
  Transmission Date: 20190418
  Serious: Yes (Other)
  Sender: FDA-Public Use
  Company Number: PHEH2019US007054

PATIENT

DRUGS (11)
  1. ZYKADIA [Suspect]
     Active Substance: CERITINIB
     Indication: LUNG ADENOCARCINOMA
     Dosage: UNK
     Route: 065
     Dates: start: 20160405, end: 201608
  2. ALECTINIB. [Concomitant]
     Active Substance: ALECTINIB
     Indication: METASTASES TO CENTRAL NERVOUS SYSTEM
     Dosage: 450 MG, BID
     Route: 065
     Dates: start: 20160908
  3. ZYKADIA [Suspect]
     Active Substance: CERITINIB
     Indication: METASTASES TO CENTRAL NERVOUS SYSTEM
  4. CARBOPLATIN. [Suspect]
     Active Substance: CARBOPLATIN
     Indication: LUNG ADENOCARCINOMA
     Dosage: UNK
     Route: 065
  5. METHOTREXATE. [Suspect]
     Active Substance: METHOTREXATE
     Indication: METASTASES TO BONE
  6. ZYKADIA [Suspect]
     Active Substance: CERITINIB
     Indication: METASTASES TO BONE
  7. CARBOPLATIN. [Suspect]
     Active Substance: CARBOPLATIN
     Indication: METASTASES TO CENTRAL NERVOUS SYSTEM
  8. CARBOPLATIN. [Suspect]
     Active Substance: CARBOPLATIN
     Indication: METASTASES TO BONE
  9. LORLATINIB [Concomitant]
     Active Substance: LORLATINIB
     Indication: PRODUCT USED FOR UNKNOWN INDICATION
     Dosage: UNK
     Route: 065
  10. METHOTREXATE. [Suspect]
     Active Substance: METHOTREXATE
     Indication: METASTASES TO CENTRAL NERVOUS SYSTEM
  11. METHOTREXATE. [Suspect]
     Active Substance: METHOTREXATE
     Indication: LUNG ADENOCARCINOMA
     Dosage: UNK
     Route: 037

REACTIONS (9)
  - Hyponatraemia [Recovered/Resolved]
  - Hyponatraemia [Unknown]
  - Loss of consciousness [Unknown]
  - Pulmonary mass [Unknown]
  - Seizure [Unknown]
  - Syncope [Unknown]
  - Metastases to meninges [Unknown]
  - Hemiparesis [Unknown]
  - Hepatic lesion [Unknown]

NARRATIVE: CASE EVENT DATE: 20160826
